FAERS Safety Report 5140948-6 (Version None)
Quarter: 2006Q4

REPORT INFORMATION
  Report Type: 
  Country: None (occurrence: None)
  Receive Date: 20061026
  Receipt Date: 20061026
  Transmission Date: 20070319
  Serious: Yes (Other)
  Sender: FDA-Public Use
  Company Number: None

PATIENT
  Age: 57 Year
  Sex: Male
  Weight: 78.0187 kg

DRUGS (14)
  1. ATENOLOL [Suspect]
     Indication: BLOOD PRESSURE
     Dosage: 25 MG BID PO
     Route: 048
     Dates: start: 20051101, end: 20060703
  2. VERAPAMIL SR 120 MG [Suspect]
     Indication: BLOOD PRESSURE
     Dosage: 120 MG QD PO
     Route: 048
     Dates: start: 20060501, end: 20060701
  3. VERAPAMIL SR 120 MG [Suspect]
     Indication: HEADACHE
     Dosage: 120 MG QD PO
     Route: 048
     Dates: start: 20060501, end: 20060701
  4. CLONAZEPAM [Concomitant]
  5. HYDROCHLOROTHIAZIDE [Concomitant]
  6. TRAMADOL HCL [Concomitant]
  7. FOSINOPRIL SODIUM [Concomitant]
  8. AMLODIPINE [Concomitant]
  9. OMEPRAZOLE [Concomitant]
  10. PRAMIPEXOLE DIHYDROCHLORIDE [Concomitant]
  11. SIMVASTATIN [Concomitant]
  12. ZOLMITRIPAN [Concomitant]
  13. POTASSIUM CHLORIDE [Concomitant]
  14. WARFARIN SODIUM [Concomitant]

REACTIONS (4)
  - ARRHYTHMIA [None]
  - BRADYCARDIA [None]
  - CARDIAC FAILURE CONGESTIVE [None]
  - PULMONARY OEDEMA [None]
